FAERS Safety Report 26177882 (Version 1)
Quarter: 2025Q4

REPORT INFORMATION
  Report Type: Spontaneous
  Country: EU (occurrence: EU)
  Receive Date: 20251219
  Receipt Date: 20251219
  Transmission Date: 20260117
  Serious: Yes (Life-Threatening, Hospitalization)
  Sender: BAUSCH AND LOMB
  Company Number: EU-BAUSCH-BH-2025-022377

PATIENT
  Age: 74 Year
  Sex: Male

DRUGS (1)
  1. CHLORDIAZEPOXIDE [Suspect]
     Active Substance: CHLORDIAZEPOXIDE
     Indication: Alcohol detoxification
     Dosage: DURING THE FIRST 49 H AFTER ADMISSION
     Route: 065

REACTIONS (6)
  - Cardiac arrest [Unknown]
  - Respiratory failure [Unknown]
  - Sedation [Unknown]
  - Respiratory distress [Unknown]
  - Bronchial secretion retention [Unknown]
  - Altered state of consciousness [Unknown]
